FAERS Safety Report 23290831 (Version 1)
Quarter: 2023Q4

REPORT INFORMATION
  Report Type: Spontaneous
  Country: US (occurrence: None)
  Receive Date: 20231213
  Receipt Date: 20231213
  Transmission Date: 20240109
  Serious: No
  Sender: FDA-Public Use
  Company Number: US-Axsome Therapeutics, Inc.-AXS202311-001476

PATIENT
  Age: 23 Year
  Sex: Female

DRUGS (1)
  1. AUVELITY [Suspect]
     Active Substance: BUPROPION HYDROCHLORIDE\DEXTROMETHORPHAN HYDROBROMIDE
     Indication: Major depression
     Route: 048
     Dates: end: 20231023

REACTIONS (5)
  - Crying [Unknown]
  - Paranoia [Unknown]
  - Anxiety [Unknown]
  - Nausea [Unknown]
  - Mania [Unknown]

NARRATIVE: CASE EVENT DATE: 20230101
